FAERS Safety Report 13367786 (Version 1)
Quarter: 2017Q1

REPORT INFORMATION
  Report Type: Spontaneous
  Country: CA (occurrence: CA)
  Receive Date: 20170324
  Receipt Date: 20170324
  Transmission Date: 20170429
  Serious: Yes (Other)
  Sender: FDA-Public Use
  Company Number: CA-ROCHE-1907267

PATIENT
  Sex: Female

DRUGS (6)
  1. METHOTREXATE. [Suspect]
     Active Substance: METHOTREXATE
     Dosage: 15 MG PER WEEK FOR THE FIRST MONTH, THEN 20 MG PER
     Route: 065
  2. FOLIC ACID. [Concomitant]
     Active Substance: FOLIC ACID
     Route: 065
  3. METHOTREXATE. [Suspect]
     Active Substance: METHOTREXATE
     Indication: PRODUCT USED FOR UNKNOWN INDICATION
     Dosage: 15 MG PER WEEK FOR THE FIRST MONTH, THEN 20 MG PER
     Route: 065
     Dates: start: 20160404
  4. CELLCEPT [Suspect]
     Active Substance: MYCOPHENOLATE MOFETIL\MYCOPHENOLATE MOFETIL HYDROCHLORIDE
     Indication: PRODUCT USED FOR UNKNOWN INDICATION
     Dosage: 2 G PER DAY THEN 3 GRAMS PER DAY
     Route: 065
     Dates: start: 201606
  5. CELLCEPT [Suspect]
     Active Substance: MYCOPHENOLATE MOFETIL\MYCOPHENOLATE MOFETIL HYDROCHLORIDE
     Dosage: 2 G PER DAY THEN 3 GRAMS PER DAY
     Route: 065
  6. PREDNISONE. [Concomitant]
     Active Substance: PREDNISONE
     Dosage: 30 MG BID ON A TAPERING SCHEDULE OVER 3 1/2 WEEKS
     Route: 065

REACTIONS (10)
  - Red blood cell sedimentation rate increased [Unknown]
  - Inflammation [Unknown]
  - Aspartate aminotransferase increased [Unknown]
  - Therapeutic response decreased [Unknown]
  - Uveitis [Unknown]
  - Visual acuity reduced [Unknown]
  - Platelet count increased [Not Recovered/Not Resolved]
  - Therapy partial responder [Unknown]
  - Alanine aminotransferase increased [Recovered/Resolved]
  - Inflammatory marker increased [Unknown]
